FAERS Safety Report 22646641 (Version 1)
Quarter: 2023Q2

REPORT INFORMATION
  Report Type: Spontaneous
  Country: CN (occurrence: CN)
  Receive Date: 20230627
  Receipt Date: 20230627
  Transmission Date: 20230722
  Serious: Yes (Other)
  Sender: FDA-Public Use
  Company Number: CN-JNJFOC-20230659550

PATIENT

DRUGS (1)
  1. DARZALEX FASPRO [Suspect]
     Active Substance: DARATUMUMAB\HYALURONIDASE-FIHJ
     Indication: Product used for unknown indication
     Route: 058

REACTIONS (6)
  - Platelet count decreased [Not Recovered/Not Resolved]
  - Tremor [Unknown]
  - Extravasation blood [Unknown]
  - Gingival bleeding [Unknown]
  - Coagulation test abnormal [Unknown]
  - Infusion related reaction [Unknown]
